FAERS Safety Report 8446004-3 (Version None)
Quarter: 2012Q2

REPORT INFORMATION
  Report Type: 
  Country: None (occurrence: None)
  Receive Date: 20120618
  Receipt Date: 20120604
  Transmission Date: 20120825
  Serious: Yes (Other)
  Sender: FDA-Public Use
  Company Number: SE-ROCHE-1020835

PATIENT

DRUGS (3)
  1. BENDAMUSTINE [Suspect]
     Indication: MANTLE CELL LYMPHOMA
  2. MABTHERA [Suspect]
     Indication: MANTLE CELL LYMPHOMA
  3. LENALIDOMIDE [Suspect]
     Indication: MANTLE CELL LYMPHOMA

REACTIONS (2)
  - HYPERSENSITIVITY [None]
  - SKIN DISORDER [None]
